FAERS Safety Report 21557819 (Version 1)
Quarter: 2022Q4

REPORT INFORMATION
  Report Type: Spontaneous
  Country: GB (occurrence: GB)
  Receive Date: 20221106
  Receipt Date: 20221106
  Transmission Date: 20230113
  Serious: Yes (Hospitalization, Other)
  Sender: FDA-Public Use
  Company Number: GB-MHRA-MED-202210261637019350-SZPVQ

PATIENT
  Age: 8 Year
  Sex: Female

DRUGS (2)
  1. RISPERDAL [Suspect]
     Active Substance: RISPERIDONE
     Indication: Attention deficit hyperactivity disorder
     Route: 065
     Dates: start: 20220321
  2. LORATADINE [Suspect]
     Active Substance: LORATADINE
     Indication: Seasonal allergy
     Route: 065
     Dates: start: 20220706, end: 20220709

REACTIONS (1)
  - Dystonia [Recovered/Resolved]

NARRATIVE: CASE EVENT DATE: 20220709
